FAERS Safety Report 9553948 (Version 1)
Quarter: 2013Q3

REPORT INFORMATION
  Report Type: Spontaneous
  Country: IT (occurrence: IT)
  Receive Date: 20130925
  Receipt Date: 20130925
  Transmission Date: 20140515
  Serious: Yes (Hospitalization)
  Sender: FDA-Public Use
  Company Number: IT-BAYER-2013-115932

PATIENT
  Age: 83 Year
  Sex: Female

DRUGS (5)
  1. CARDIOASPIRIN [Suspect]
     Indication: PLATELET AGGREGATION INHIBITION
     Dosage: DAILY DOSE 100 MG
     Route: 048
     Dates: start: 20000101, end: 20130918
  2. CARDIOASPIRIN [Suspect]
     Indication: PLATELET AGGREGATION INHIBITION
  3. COTAREG [Concomitant]
     Dosage: UNK
  4. OMEPRAZEN [Concomitant]
     Dosage: UNK
  5. XANAX [Concomitant]
     Dosage: UNK

REACTIONS (3)
  - Abdominal pain upper [Recovering/Resolving]
  - Cold sweat [Recovering/Resolving]
  - Presyncope [Recovering/Resolving]
